FAERS Safety Report 8312628-7 (Version None)
Quarter: 2012Q2

REPORT INFORMATION
  Report Type: 
  Country: None (occurrence: None)
  Receive Date: 20120424
  Receipt Date: 20120416
  Transmission Date: 20120825
  Serious: Yes (Disabling, Other)
  Sender: FDA-Public Use
  Company Number: ACO_29718_2012

PATIENT
  Age: 50 Year
  Sex: Male
  Weight: 77.1 kg

DRUGS (4)
  1. CARDURA [Concomitant]
  2. LORAZEPAM [Concomitant]
  3. COPAXONE [Suspect]
     Indication: PRODUCT USED FOR UNKNOWN INDICATION
     Dosage: 20 MG, QD, SUBCUTANEOUS
     Route: 058
     Dates: start: 20120101, end: 20120201
  4. AMPRA (DALFAMPRIDINE) TABLET, 10MG [Suspect]
     Indication: GAIT DISTURBANCE
     Dosage: 10 MG, Q 12 HRS, ORAL
     Route: 048
     Dates: start: 20120101, end: 20120201

REACTIONS (3)
  - GAIT DISTURBANCE [None]
  - ACTIVITIES OF DAILY LIVING IMPAIRED [None]
  - MOBILITY DECREASED [None]
